FAERS Safety Report 8560701-0 (Version None)
Quarter: 2012Q3

REPORT INFORMATION
  Report Type: 
  Country: None (occurrence: None)
  Receive Date: 20120802
  Receipt Date: 20120801
  Transmission Date: 20120928
  Serious: Yes (Hospitalization, Other)
  Sender: FDA-Public Use
  Company Number: PHEH2012US015043

PATIENT
  Sex: Male

DRUGS (9)
  1. OMEPRAZOLE [Concomitant]
     Dosage: UNK UKN, UNK
  2. DIOVAN [Suspect]
     Indication: HYPERTENSION
     Dosage: 160 MG, TWICE PER DAY
     Route: 048
  3. HYDROMORPHINE HYDROCHLORIDE [Concomitant]
     Dosage: UNK UKN, UNK
  4. DEXAMETHASONE [Concomitant]
     Dosage: UNK UKN, UNK
  5. PROCHLORPERAZINE [Concomitant]
     Dosage: UNK UKN, UNK
  6. PILOCARPINE [Concomitant]
     Dosage: UNK UKN, UNK
  7. LEVOFLOXACIN [Concomitant]
     Dosage: UNK UKN, UNK
  8. ONDANSETRON [Concomitant]
     Dosage: UNK UKN, UNK
  9. CISPLATIN [Concomitant]
     Dosage: UNK UKN, UNK

REACTIONS (4)
  - PYREXIA [None]
  - VOMITING [None]
  - DEHYDRATION [None]
  - HEAD AND NECK CANCER [None]
